FAERS Safety Report 23361826 (Version 2)
Quarter: 2024Q1

REPORT INFORMATION
  Report Type: Spontaneous
  Country: US (occurrence: US)
  Receive Date: 20240103
  Receipt Date: 20240326
  Transmission Date: 20240410
  Serious: No
  Sender: FDA-Public Use
  Company Number: US-PFIZER INC-202300441579

PATIENT
  Age: 12 Year
  Sex: Male

DRUGS (1)
  1. OXBRYTA [Suspect]
     Active Substance: VOXELOTOR
     Indication: Sickle cell disease
     Dosage: 500MG TABLETS X3 ONCE DAILY
     Route: 048
     Dates: start: 20231127

REACTIONS (4)
  - Wrong technique in product usage process [Unknown]
  - Product dose omission in error [Unknown]
  - Product label confusion [Unknown]
  - Vomiting [Unknown]

NARRATIVE: CASE EVENT DATE: 20231127
